FAERS Safety Report 5094041-1 (Version None)
Quarter: 2006Q3

REPORT INFORMATION
  Report Type: 
  Country: None (occurrence: None)
  Receive Date: 20060829
  Receipt Date: 20060815
  Transmission Date: 20061208
  Serious: Yes (Other)
  Sender: FDA-Public Use
  Company Number: 228783

PATIENT
  Age: 53 Year
  Sex: Female

DRUGS (1)
  1. RITUXIMAB (RITUXIMAB) CONC FOR SOLUTION FOR INFUSION [Suspect]
     Indication: LYMPHOPROLIFERATIVE DISORDER
     Dosage: 375 MG/M2, 1/WEEK

REACTIONS (6)
  - ASPERGILLOSIS [None]
  - DISEASE PROGRESSION [None]
  - GRAFT VERSUS HOST DISEASE [None]
  - HEPATIC INFECTION FUNGAL [None]
  - MULTI-ORGAN FAILURE [None]
  - SEPSIS [None]
